FAERS Safety Report 10686645 (Version 3)
Quarter: 2015Q1

REPORT INFORMATION
  Report Type: Spontaneous
  Country: AU (occurrence: AU)
  Receive Date: 20150101
  Receipt Date: 20150129
  Transmission Date: 20150720
  Serious: Yes (Death, Other)
  Sender: FDA-Public Use
  Company Number: AU-ASTRAZENECA-2012SE24509

PATIENT
  Sex: Male

DRUGS (1)
  1. ZOLADEX [Suspect]
     Active Substance: GOSERELIN ACETATE
     Route: 058
     Dates: start: 20101001

REACTIONS (3)
  - Pain in extremity [Unknown]
  - Death [Fatal]
  - Malignant neoplasm progression [Unknown]
